FAERS Safety Report 7298044-8 (Version None)
Quarter: 2011Q1

REPORT INFORMATION
  Report Type: 
  Country: None (occurrence: None)
  Receive Date: 20110217
  Receipt Date: 20110214
  Transmission Date: 20110831
  Serious: No
  Sender: FDA-Public Use
  Company Number: US-PFIZER INC-2011032747

PATIENT
  Sex: Female
  Weight: 72.562 kg

DRUGS (4)
  1. CALCIUM [Concomitant]
     Dosage: UNK
  2. CENTRUM SILVER [Suspect]
     Dosage: UNK
  3. ZOLOFT [Suspect]
     Indication: ANXIETY
     Dosage: UNK
     Route: 048
  4. VITAMIN D [Concomitant]
     Dosage: UNK

REACTIONS (2)
  - MALAISE [None]
  - SOMNOLENCE [None]
